FAERS Safety Report 16664873 (Version 1)
Quarter: 2019Q3

REPORT INFORMATION
  Report Type: Spontaneous
  Country: US (occurrence: US)
  Receive Date: 20190803
  Receipt Date: 20190803
  Transmission Date: 20191004
  Serious: Yes (Other)
  Sender: FDA-Public Use
  Company Number: US-ACCORD-069811

PATIENT
  Age: 50 Year
  Sex: Female

DRUGS (14)
  1. DOCETAXEL ACCORD [Suspect]
     Active Substance: DOCETAXEL
     Indication: BREAST CANCER
     Dates: start: 20141016, end: 20150213
  2. DOXORUBICIN [Suspect]
     Active Substance: DOXORUBICIN
     Indication: BREAST CANCER
     Dates: start: 2013
  3. CYTOXAN [Suspect]
     Active Substance: CYCLOPHOSPHAMIDE
     Indication: BREAST CANCER
     Dates: start: 2013
  4. TAMOXIFEN [Concomitant]
     Active Substance: TAMOXIFEN
     Dates: start: 20140701, end: 20140831
  5. FASLODEX [Concomitant]
     Active Substance: FULVESTRANT
     Dates: start: 20140801, end: 20141130
  6. ZOFRAN [Concomitant]
     Active Substance: ONDANSETRON HYDROCHLORIDE
     Dates: start: 20130114, end: 20130423
  7. NEULASTA [Concomitant]
     Active Substance: PEGFILGRASTIM
  8. FLEXERIL [Concomitant]
     Active Substance: CYCLOBENZAPRINE HYDROCHLORIDE
     Dates: start: 20121212, end: 20130630
  9. XELODA [Concomitant]
     Active Substance: CAPECITABINE
     Dates: start: 20141201, end: 20161231
  10. NORCO [Concomitant]
     Active Substance: ACETAMINOPHEN\HYDROCODONE BITARTRATE
     Dates: start: 20121212, end: 20130630
  11. PERCOCET [Concomitant]
     Active Substance: ACETAMINOPHEN\OXYCODONE HYDROCHLORIDE
     Dates: start: 20121208, end: 20130531
  12. ARIMIDEX [Concomitant]
     Active Substance: ANASTROZOLE
     Dates: start: 20140401, end: 20140731
  13. ZOMETA [Concomitant]
     Active Substance: ZOLEDRONIC ACID
     Dates: start: 20141006
  14. TAXOL [Suspect]
     Active Substance: PACLITAXEL
     Indication: BREAST CANCER
     Dates: start: 2013

REACTIONS (1)
  - Alopecia [Not Recovered/Not Resolved]

NARRATIVE: CASE EVENT DATE: 20150813
